FAERS Safety Report 23641013 (Version 2)
Quarter: 2024Q3

REPORT INFORMATION
  Report Type: Report from Study
  Country: EG (occurrence: EG)
  Receive Date: 20240318
  Receipt Date: 20240820
  Transmission Date: 20241016
  Serious: Yes (Death, Disabling, Other)
  Sender: NOVARTIS
  Company Number: EG-002147023-NVSC2024EG049556

PATIENT
  Age: 63 Year
  Sex: Male

DRUGS (8)
  1. ENTRESTO [Suspect]
     Active Substance: SACUBITRIL\VALSARTAN
     Indication: Cardiac failure
     Dosage: UNK (SN:10646487696181)
     Route: 048
  2. ENTRESTO [Suspect]
     Active Substance: SACUBITRIL\VALSARTAN
     Dosage: 50 MG, HALF TAB BID
     Route: 048
     Dates: start: 202304, end: 202310
  3. ENTRESTO [Suspect]
     Active Substance: SACUBITRIL\VALSARTAN
     Dosage: 100 MG, HALF TAB BID
     Route: 065
  4. CARFALONE [Concomitant]
     Indication: Cardiac failure
     Dosage: 25 MG, QD
     Route: 065
     Dates: start: 202304
  5. DIAMICRON [Concomitant]
     Indication: Diabetes mellitus
     Dosage: 30 MG, QD
     Route: 065
     Dates: start: 202310
  6. ASPIRIN [Concomitant]
     Active Substance: ASPIRIN
     Indication: Anticoagulation drug level above therapeutic
     Dosage: 75 MG, QD
     Route: 065
  7. RIVAROXABAN [Concomitant]
     Active Substance: RIVAROXABAN
     Indication: Vasodilation procedure
     Dosage: 2.5 MG THEN 10 MG
     Route: 065
  8. TORSEMIDE [Concomitant]
     Active Substance: TORSEMIDE
     Indication: Polyuria
     Dosage: 20 MG, QD
     Route: 065
     Dates: start: 202304

REACTIONS (9)
  - Death [Fatal]
  - Aphasia [Unknown]
  - Hypotension [Unknown]
  - Renal impairment [Recovering/Resolving]
  - Drug ineffective [Unknown]
  - Off label use [Unknown]
  - Hypertension [Recovering/Resolving]
  - Prothrombin time prolonged [Unknown]
  - Haemoglobin decreased [Recovering/Resolving]

NARRATIVE: CASE EVENT DATE: 20230401
